FAERS Safety Report 20611216 (Version 1)
Quarter: 2022Q1

REPORT INFORMATION
  Report Type: Report from Study
  Country: CA (occurrence: None)
  Receive Date: 20220318
  Receipt Date: 20220318
  Transmission Date: 20220424
  Serious: Yes (Other)
  Sender: FDA-Public Use
  Company Number: CA-Eisai Medical Research-EC-2022-110547

PATIENT
  Age: 30 Year
  Sex: Female

DRUGS (1)
  1. LENVIMA [Suspect]
     Active Substance: LENVATINIB
     Indication: Neuroendocrine tumour
     Dosage: DOSE AND FREQUENCY UNKNOWN
     Route: 048
     Dates: start: 202112, end: 20220103

REACTIONS (1)
  - Cardiac failure congestive [Unknown]

NARRATIVE: CASE EVENT DATE: 20220101
